FAERS Safety Report 5732949-1 (Version None)
Quarter: 2008Q2

REPORT INFORMATION
  Report Type: 
  Country: None (occurrence: None)
  Receive Date: 20080509
  Receipt Date: 20080506
  Transmission Date: 20081010
  Serious: Yes (Hospitalization)
  Sender: FDA-Public Use
  Company Number: US-BAYER-200818189NA

PATIENT
  Sex: Female

DRUGS (3)
  1. BETASERON [Suspect]
     Indication: MULTIPLE SCLEROSIS
     Route: 058
  2. COPAXONE [Concomitant]
     Dates: end: 20071001
  3. TYSABRI [Concomitant]
     Route: 042
     Dates: start: 20080329

REACTIONS (2)
  - CARDIOMYOPATHY [None]
  - SYNCOPE [None]
